FAERS Safety Report 17139566 (Version 3)
Quarter: 2021Q3

REPORT INFORMATION
  Report Type: Spontaneous
  Country: CA (occurrence: CA)
  Receive Date: 20191211
  Receipt Date: 20210717
  Transmission Date: 20211014
  Serious: Yes (Other)
  Sender: FDA-Public Use
  Company Number: CA-ROCHE-2491072

PATIENT
  Age: 11 Year
  Sex: Male

DRUGS (3)
  1. TRYPTOPHAN [Concomitant]
     Active Substance: TRYPTOPHAN
     Route: 048
  2. SOMATROPIN. [Suspect]
     Active Substance: SOMATROPIN
     Indication: GROWTH RETARDATION
     Route: 058
  3. SOMATROPIN. [Suspect]
     Active Substance: SOMATROPIN
     Route: 065

REACTIONS (10)
  - Injection site pain [Not Recovered/Not Resolved]
  - Eye haemorrhage [Not Recovered/Not Resolved]
  - Musculoskeletal pain [Not Recovered/Not Resolved]
  - Ocular discomfort [Not Recovered/Not Resolved]
  - Hypertension [Not Recovered/Not Resolved]
  - Headache [Not Recovered/Not Resolved]
  - Hydrocephalus [Not Recovered/Not Resolved]
  - Product prescribing error [Unknown]
  - Neck pain [Not Recovered/Not Resolved]
  - Drug hypersensitivity [Unknown]
